FAERS Safety Report 21698817 (Version 2)
Quarter: 2022Q4

REPORT INFORMATION
  Report Type: Spontaneous
  Country: None (occurrence: PL)
  Receive Date: 20221208
  Receipt Date: 20221209
  Transmission Date: 20230113
  Serious: Yes (Death)
  Sender: FDA-Public Use
  Company Number: PL-Therakind Limited-2135671

PATIENT
  Age: 10 Year
  Sex: Male

DRUGS (8)
  1. METHOTREXATE SODIUM [Suspect]
     Active Substance: METHOTREXATE SODIUM
     Indication: Graft versus host disease
  2. ETANERCEPT [Suspect]
     Active Substance: ETANERCEPT
  3. VEDOLIZUMAB [Suspect]
     Active Substance: VEDOLIZUMAB
  4. METHYLPREDNISOLONE [Suspect]
     Active Substance: METHYLPREDNISOLONE
  5. MYCOPHENOLATE MOFETIL [Suspect]
     Active Substance: MYCOPHENOLATE MOFETIL
  6. BASILIXIMAB [Suspect]
     Active Substance: BASILIXIMAB
  7. CYCLOSPORINE [Suspect]
     Active Substance: CYCLOSPORINE
  8. TACROLIMUS [Suspect]
     Active Substance: TACROLIMUS

REACTIONS (2)
  - Off label use [Fatal]
  - Drug ineffective for unapproved indication [Fatal]
